FAERS Safety Report 14767148 (Version 1)
Quarter: 2018Q2

REPORT INFORMATION
  Report Type: Spontaneous
  Country: GB (occurrence: GB)
  Receive Date: 20180417
  Receipt Date: 20180417
  Transmission Date: 20180711
  Serious: Yes (Other)
  Sender: FDA-Public Use
  Company Number: GB-TEVA-2018-GB-881696

PATIENT
  Age: 71 Year
  Sex: Male
  Weight: 73 kg

DRUGS (7)
  1. PRAVASTATIN. [Concomitant]
     Active Substance: PRAVASTATIN
     Dosage: 1 DOSAGE FORMS DAILY; AT NIGHT FOR TWO WEEKS, THEN IN...
     Dates: start: 20180212
  2. ATORVASTATIN [Suspect]
     Active Substance: ATORVASTATIN
     Dates: start: 20170731
  3. METFORMIN [Concomitant]
     Active Substance: METFORMIN HYDROCHLORIDE
     Dosage: 1 DOSAGE FORMS DAILY; WITH BREAKFAST.
     Dates: start: 20170731
  4. PROCHLORPERAZINE. [Concomitant]
     Active Substance: PROCHLORPERAZINE
     Dosage: 3 DOSAGE FORMS DAILY; FOR 1 WEEKS AND...
     Dates: start: 20171121, end: 20171201
  5. ACETYLSALICYLIC ACID [Concomitant]
     Active Substance: ASPIRIN
     Dosage: 1 DOSAGE FORMS DAILY;
     Dates: start: 20170731
  6. COCODAMOL [Concomitant]
     Active Substance: ACETAMINOPHEN\CODEINE PHOSPHATE
     Dosage: 8 DOSAGE FORMS DAILY;
     Dates: start: 20170731
  7. OMEPRAZOLE. [Concomitant]
     Active Substance: OMEPRAZOLE
     Dosage: 1 DOSAGE FORMS DAILY;
     Dates: start: 20170731

REACTIONS (2)
  - Irritability [Unknown]
  - Muscle spasms [Recovered/Resolved]

NARRATIVE: CASE EVENT DATE: 20180212
